FAERS Safety Report 9638526 (Version 2)
Quarter: 2013Q4

REPORT INFORMATION
  Report Type: Spontaneous
  Country: US (occurrence: US)
  Receive Date: 20131022
  Receipt Date: 20131031
  Transmission Date: 20140711
  Serious: No
  Sender: FDA-Public Use
  Company Number: US-TEVA-439561USA

PATIENT
  Sex: Male
  Weight: 97.61 kg

DRUGS (8)
  1. PROAIR HFA [Suspect]
     Indication: INCREASED BRONCHIAL SECRETION
     Route: 055
     Dates: start: 201305
  2. FENOFIBRATE [Concomitant]
  3. LOSARTAN POTASSIUM [Concomitant]
  4. CARVEDIOL [Concomitant]
  5. METFORMIN [Concomitant]
  6. GABAPENTIN [Concomitant]
  7. NOVOLIN R [Concomitant]
  8. NOVOLIN N [Concomitant]

REACTIONS (4)
  - Productive cough [Recovered/Resolved]
  - Drug ineffective [Not Recovered/Not Resolved]
  - Off label use [Unknown]
  - Wrong technique in drug usage process [Unknown]
